FAERS Safety Report 7904582-4 (Version None)
Quarter: 2011Q4

REPORT INFORMATION
  Report Type: 
  Country: None (occurrence: None)
  Receive Date: 20111109
  Receipt Date: 20111028
  Transmission Date: 20120403
  Serious: Yes (Hospitalization)
  Sender: FDA-Public Use
  Company Number: US-GLAXOSMITHKLINE-A0871303A

PATIENT
  Sex: Female
  Weight: 115 kg

DRUGS (5)
  1. GLYBURIDE [Concomitant]
  2. METFORMIN HCL [Concomitant]
  3. DIOVAN [Concomitant]
  4. DILTIAZEM HCL [Concomitant]
  5. AVANDIA [Suspect]
     Indication: TYPE 2 DIABETES MELLITUS
     Dosage: 8MG PER DAY
     Route: 048
     Dates: start: 20030413, end: 20040129

REACTIONS (2)
  - CHEST PAIN [None]
  - CARDIOVASCULAR DISORDER [None]
